FAERS Safety Report 10313814 (Version 1)
Quarter: 2014Q3

REPORT INFORMATION
  Report Type: Spontaneous
  Country: US (occurrence: US)
  Receive Date: 20140718
  Receipt Date: 20140718
  Transmission Date: 20150326
  Serious: No
  Sender: FDA-Public Use
  Company Number: US-BAUSCH-BL-2014-002697

PATIENT
  Age: 68 Year
  Sex: Female

DRUGS (3)
  1. RESTASIS [Interacting]
     Active Substance: CYCLOSPORINE
     Indication: PRODUCT USED FOR UNKNOWN INDICATION
  2. PROLENSA [Suspect]
     Active Substance: BROMFENAC SODIUM
     Indication: EYE INFLAMMATION
     Dosage: 1 DROP IN BOTH EYES, ONCE DAILY
     Route: 047
     Dates: start: 20140509, end: 20140510
  3. HYPOTEARS [Interacting]
     Active Substance: POLYETHYLENE GLYCOL 400\POLYVINYL ALCOHOL
     Indication: PRODUCT USED FOR UNKNOWN INDICATION

REACTIONS (2)
  - Dry eye [Recovered/Resolved]
  - Eye irritation [Recovered/Resolved]

NARRATIVE: CASE EVENT DATE: 20140509
